FAERS Safety Report 23427098 (Version 1)
Quarter: 2024Q1

REPORT INFORMATION
  Report Type: Spontaneous
  Country: US (occurrence: None)
  Receive Date: 20240119
  Receipt Date: 20240119
  Transmission Date: 20240409
  Serious: No
  Sender: FDA-Public Use
  Company Number: None

PATIENT
  Sex: Female

DRUGS (1)
  1. GENOTROPIN [Suspect]
     Active Substance: SOMATROPIN
     Indication: Hypopituitarism
     Dosage: 0.6MG ONCE DAILY UNDER THE SKIN
     Route: 058
     Dates: start: 202303

REACTIONS (5)
  - Product storage error [None]
  - Drug ineffective [None]
  - Fatigue [None]
  - Nonspecific reaction [None]
  - Injection site pain [None]
